FAERS Safety Report 16775992 (Version 5)
Quarter: 2019Q4

REPORT INFORMATION
  Report Type: Spontaneous
  Country: US (occurrence: US)
  Receive Date: 20190905
  Receipt Date: 20191209
  Transmission Date: 20200122
  Serious: Yes (Hospitalization)
  Sender: FDA-Public Use
  Company Number: US-PFIZER INC-2019378380

PATIENT
  Age: 57 Year
  Sex: Male

DRUGS (2)
  1. INLYTA [Suspect]
     Active Substance: AXITINIB
     Indication: RENAL CANCER
     Dosage: 5 MG, 2X/DAY (FOR 30 DAYS)
     Route: 048
     Dates: start: 201908, end: 2019
  2. KEYTRUDA [Concomitant]
     Active Substance: PEMBROLIZUMAB
     Dosage: UNK

REACTIONS (14)
  - Abdominal pain upper [Not Recovered/Not Resolved]
  - Ageusia [Unknown]
  - Constipation [Not Recovered/Not Resolved]
  - Arthralgia [Not Recovered/Not Resolved]
  - Bone pain [Not Recovered/Not Resolved]
  - Skin lesion [Not Recovered/Not Resolved]
  - Glossodynia [Unknown]
  - Urticaria [Unknown]
  - Dysphonia [Unknown]
  - Infection [Unknown]
  - Pain [Not Recovered/Not Resolved]
  - Headache [Unknown]
  - Snoring [Not Recovered/Not Resolved]
  - Fatigue [Unknown]
